FAERS Safety Report 14860543 (Version 2)
Quarter: 2018Q2

REPORT INFORMATION
  Report Type: Spontaneous
  Country: CA (occurrence: CA)
  Receive Date: 20180508
  Receipt Date: 20180515
  Transmission Date: 20180711
  Serious: Yes (Death)
  Sender: FDA-Public Use
  Company Number: CA-PFIZER INC-2018013324

PATIENT
  Age: 55 Year
  Sex: Female

DRUGS (10)
  1. CALCIUM [Concomitant]
     Active Substance: CALCIUM
     Dosage: UNK UNK, 1X/DAY (ONE PER DAY)
  2. IBRANCE [Suspect]
     Active Substance: PALBOCICLIB
     Dosage: 100 MG, CYCLIC (DAILY, FOR 21 DAYS AND OFF FOR 7 DAYS)
     Route: 048
  3. BEE PROPOLIS [Concomitant]
     Dosage: UNK UNK, 1X/DAY (ONE PER DAY)
  4. IBRANCE [Suspect]
     Active Substance: PALBOCICLIB
     Indication: BREAST CANCER
     Dosage: 125 MG, CYCLIC (DAILY FOR 21 DAYS EVERY 28 DAYS)
     Route: 048
     Dates: start: 20171228
  5. VITAMIN C [Concomitant]
     Active Substance: ASCORBIC ACID
     Dosage: UNK UNK, 1X/DAY (ONE PER DAY)
  6. AFINITOR [Concomitant]
     Active Substance: EVEROLIMUS
     Dosage: UNK
  7. OMEGA 3 [Concomitant]
     Active Substance: OMEGA-3 FATTY ACIDS
     Dosage: UNK UNK, 1X/DAY (ONE PER DAY)
  8. FASLODEX [Concomitant]
     Active Substance: FULVESTRANT
     Dosage: UNK UNK, 1X/DAY (EVERY MORNING)
  9. VITAMIN D3 [Concomitant]
     Active Substance: CHOLECALCIFEROL
     Dosage: UNK UNK, 1X/DAY (ONE PER DAY)
  10. COENZYME Q10 [Concomitant]
     Active Substance: UBIDECARENONE
     Dosage: UNK

REACTIONS (4)
  - Nausea [Unknown]
  - White blood cell count decreased [Recovering/Resolving]
  - Neoplasm progression [Fatal]
  - Vomiting [Unknown]
